FAERS Safety Report 16285756 (Version 1)
Quarter: 2019Q2

REPORT INFORMATION
  Report Type: Spontaneous
  Country: AU (occurrence: AU)
  Receive Date: 20190506
  Receipt Date: 20190506
  Transmission Date: 20190711
  Serious: Yes (Disabling)
  Sender: FDA-Public Use
  Company Number: None

PATIENT
  Age: 48 Year
  Sex: Female
  Weight: 63 kg

DRUGS (6)
  1. COSENTYX [Suspect]
     Active Substance: SECUKINUMAB
     Indication: ANKYLOSING SPONDYLITIS
     Dosage: ?          QUANTITY:2 INJECTION(S);OTHER FREQUENCY:SEE USUAL DOSAGE;?
     Route: 058
     Dates: start: 20190305, end: 20190507
  2. TRAMADOL. [Concomitant]
     Active Substance: TRAMADOL
  3. PANADOL [Concomitant]
     Active Substance: ACETAMINOPHEN
  4. PERINDOPRIL [Concomitant]
     Active Substance: PERINDOPRIL
  5. COSENTYX [Concomitant]
     Active Substance: SECUKINUMAB
  6. TEGRETOL [Concomitant]
     Active Substance: CARBAMAZEPINE

REACTIONS (5)
  - Pain in extremity [None]
  - Neuropathy peripheral [None]
  - Fatigue [None]
  - Diarrhoea [None]
  - Pain [None]
